FAERS Safety Report 7296346-2 (Version None)
Quarter: 2011Q1

REPORT INFORMATION
  Report Type: 
  Country: None (occurrence: None)
  Receive Date: 20110216
  Receipt Date: 20110210
  Transmission Date: 20110831
  Serious: Yes (Other)
  Sender: FDA-Public Use
  Company Number: CA-JNJFOC-20110204120

PATIENT
  Sex: Male
  Weight: 97.1 kg

DRUGS (7)
  1. CALCIUM [Concomitant]
  2. CELEXA [Concomitant]
  3. IMOVANE [Concomitant]
  4. REMICADE [Suspect]
     Indication: CROHN'S DISEASE
     Dosage: INFUSION 11
     Route: 042
  5. VITAMIN B-12 [Concomitant]
  6. ASCORBIC ACID [Concomitant]
  7. REMICADE [Suspect]
     Route: 042

REACTIONS (5)
  - URTICARIA [None]
  - INFUSION RELATED REACTION [None]
  - DYSPNOEA EXERTIONAL [None]
  - PRURITUS [None]
  - INTESTINAL RESECTION [None]
